FAERS Safety Report 5716470-2 (Version None)
Quarter: 2008Q2

REPORT INFORMATION
  Report Type: 
  Country: None (occurrence: None)
  Receive Date: 20080415
  Receipt Date: 20070806
  Transmission Date: 20081010
  Serious: Yes (Other)
  Sender: FDA-Public Use
  Company Number: 2007-03714

PATIENT
  Age: 35 Year
  Sex: Female
  Weight: 84.4 kg

DRUGS (10)
  1. FERRLECIT [Suspect]
     Indication: IRON DEFICIENCY ANAEMIA
     Dosage: SEE IMAGE
     Route: 042
     Dates: start: 20070629, end: 20070629
  2. FERRLECIT [Suspect]
     Indication: IRON DEFICIENCY ANAEMIA
     Dosage: SEE IMAGE
     Route: 042
     Dates: start: 20070706, end: 20070706
  3. FERRLECIT [Suspect]
     Indication: IRON DEFICIENCY ANAEMIA
     Dosage: SEE IMAGE
     Route: 042
     Dates: start: 20070713, end: 20070713
  4. FERRLECIT [Suspect]
     Indication: IRON DEFICIENCY ANAEMIA
     Dosage: SEE IMAGE
     Route: 042
     Dates: start: 20070720, end: 20070720
  5. FERRLECIT [Suspect]
     Indication: IRON DEFICIENCY ANAEMIA
     Dosage: SEE IMAGE
     Route: 042
     Dates: start: 20070802, end: 20070802
  6. LEXAPRO [Concomitant]
  7. PROCARDIA [Concomitant]
  8. ASPIRIN [Concomitant]
  9. FLEXERIL [Concomitant]
  10. LORTAB [Concomitant]

REACTIONS (7)
  - ARTHRALGIA [None]
  - DIZZINESS [None]
  - FEELING HOT [None]
  - OEDEMA PERIPHERAL [None]
  - PARAESTHESIA [None]
  - RASH ERYTHEMATOUS [None]
  - RASH PRURITIC [None]
